FAERS Safety Report 22304682 (Version 5)
Quarter: 2025Q3

REPORT INFORMATION
  Report Type: Spontaneous
  Country: US (occurrence: US)
  Receive Date: 20230510
  Receipt Date: 20250826
  Transmission Date: 20251020
  Serious: Yes (Other)
  Sender: LUPIN
  Company Number: US-LUPIN PHARMACEUTICALS INC.-2023-03556

PATIENT
  Age: 93 Year
  Weight: 53.968 kg

DRUGS (1)
  1. CEFDINIR [Suspect]
     Active Substance: CEFDINIR
     Indication: COVID-19
     Dosage: 1 DOSAGE FORM, BID (FOR 5 DAYS)

REACTIONS (9)
  - Glaucoma [Recovered/Resolved with Sequelae]
  - Optic nerve injury [Unknown]
  - Blindness [Unknown]
  - Product use in unapproved indication [Unknown]
  - Diarrhoea [Unknown]
  - Fungal infection [Unknown]
  - Vaginal infection [Unknown]
  - Visual impairment [Unknown]
  - Somnolence [Unknown]
